FAERS Safety Report 23972393 (Version 1)
Quarter: 2024Q2

REPORT INFORMATION
  Report Type: Spontaneous
  Country: US (occurrence: US)
  Receive Date: 20240613
  Receipt Date: 20240613
  Transmission Date: 20240715
  Serious: No
  Sender: FDA-Public Use
  Company Number: US-SA-SAC20240607001187

PATIENT
  Age: 3 Year
  Sex: Male

DRUGS (1)
  1. DUPIXENT [Suspect]
     Active Substance: DUPILUMAB
     Dosage: 300 MG, Q4W
     Route: 058

REACTIONS (7)
  - Sleep disorder [Unknown]
  - Skin haemorrhage [Unknown]
  - Skin fissures [Unknown]
  - Skin weeping [Unknown]
  - Dry skin [Unknown]
  - Skin exfoliation [Unknown]
  - Pruritus [Unknown]
